FAERS Safety Report 9740048 (Version 2)
Quarter: 2014Q1

REPORT INFORMATION
  Report Type: Report from Study
  Country: BR (occurrence: BR)
  Receive Date: 20131209
  Receipt Date: 20140306
  Transmission Date: 20141002
  Serious: Yes (Other)
  Sender: FDA-Public Use
  Company Number: BR-ABBVIE-13P-020-1175598-00

PATIENT
  Sex: Male
  Weight: 82 kg

DRUGS (3)
  1. HUMIRA [Suspect]
     Indication: PSORIATIC ARTHROPATHY
     Route: 058
     Dates: start: 201311
  2. CELI BUTAZONA [Concomitant]
     Indication: RHEUMATIC DISORDER
     Dosage: ONCE DAILY
     Route: 048
     Dates: start: 2008
  3. FAMOTIDINE [Concomitant]
     Indication: RHEUMATIC DISORDER
     Dosage: ONCE DAILY
     Route: 048
     Dates: start: 2008

REACTIONS (1)
  - Pharyngeal cyst [Recovering/Resolving]
